FAERS Safety Report 5615970-3 (Version None)
Quarter: 2008Q1

REPORT INFORMATION
  Report Type: 
  Country: None (occurrence: None)
  Receive Date: 20080206
  Receipt Date: 20080122
  Transmission Date: 20080703
  Serious: No
  Sender: FDA-Public Use
  Company Number: US-BOEHRINGER INGELHEIM GMBH, GERMANY-2008-BP-01083BP

PATIENT
  Sex: Female

DRUGS (5)
  1. ZANTAC 75 [Suspect]
     Indication: GASTROOESOPHAGEAL REFLUX DISEASE
     Route: 048
     Dates: start: 20071101, end: 20071201
  2. ACIPHEX [Concomitant]
  3. THYROID MEDS [Concomitant]
  4. LISINOPRIL [Concomitant]
  5. DIGOXIN [Concomitant]

REACTIONS (2)
  - PRURITUS [None]
  - RASH [None]
